FAERS Safety Report 12871278 (Version 2)
Quarter: 2016Q4

REPORT INFORMATION
  Report Type: Report from Study
  Country: MX (occurrence: MX)
  Receive Date: 20161021
  Receipt Date: 20161123
  Transmission Date: 20170207
  Serious: Yes (Death, Hospitalization, Other)
  Sender: FDA-Public Use
  Company Number: MX-BRISTOL-MYERS SQUIBB COMPANY-BMS-2016-087459

PATIENT
  Age: 34 Year
  Sex: Female
  Weight: 45 kg

DRUGS (1)
  1. DASATINIB [Suspect]
     Active Substance: DASATINIB
     Indication: CHRONIC MYELOID LEUKAEMIA
     Dosage: 50 MG, BID
     Route: 048
     Dates: start: 20160202, end: 20161004

REACTIONS (4)
  - Pyrexia [Unknown]
  - Seizure [Unknown]
  - Loss of consciousness [Unknown]
  - Brain injury [Fatal]

NARRATIVE: CASE EVENT DATE: 20161001
